FAERS Safety Report 25113841 (Version 1)
Quarter: 2025Q1

REPORT INFORMATION
  Report Type: Spontaneous
  Country: US (occurrence: US)
  Receive Date: 20250324
  Receipt Date: 20250324
  Transmission Date: 20250409
  Serious: No
  Sender: MYLAN
  Company Number: US-MYLANLABS-2025M1022652

PATIENT
  Age: 35 Year
  Sex: Female
  Weight: 77.11 kg

DRUGS (1)
  1. XULANE [Suspect]
     Active Substance: ETHINYL ESTRADIOL\NORELGESTROMIN
     Indication: Contraception
     Dosage: 150/35 MICROGRAM, QD (PER DAY)

REACTIONS (2)
  - Product adhesion issue [Unknown]
  - Lack of application site rotation [Unknown]

NARRATIVE: CASE EVENT DATE: 20250305
